APPROVED DRUG PRODUCT: XDEMVY
Active Ingredient: LOTILANER
Strength: 0.25%
Dosage Form/Route: SOLUTION/DROPS;OPHTHALMIC
Application: N217603 | Product #001
Applicant: TARSUS PHARMACEUTICALS INC
Approved: Jul 24, 2023 | RLD: Yes | RS: Yes | Type: RX

PATENTS:
Patent 11690827 | Expires: Dec 14, 2038
Patent 11690826 | Expires: Dec 14, 2038
Patent 11197847 | Expires: Dec 14, 2038
Patent 10835517 | Expires: Dec 14, 2038
Patent 12171750 | Expires: Dec 14, 2038
Patent 11752137 | Expires: Dec 14, 2038
Patent 12213964 | Expires: Dec 14, 2038
Patent 12364685 | Expires: Dec 14, 2038
Patent 8383659 | Expires: Jan 17, 2030

EXCLUSIVITY:
Code: NCE | Date: Jul 24, 2028